FAERS Safety Report 4498043-5 (Version None)
Quarter: 2004Q3

REPORT INFORMATION
  Report Type: 
  Country: None (occurrence: None)
  Receive Date: 20040927
  Receipt Date: 20040603
  Transmission Date: 20050211
  Serious: No
  Sender: FDA-Public Use
  Company Number: USA040669194

PATIENT
  Sex: Female

DRUGS (2)
  1. STRATTERA [Suspect]
     Indication: ATTENTION DEFICIT/HYPERACTIVITY DISORDER
     Dosage: 60 MG DAY
  2. THYROID TAB [Concomitant]

REACTIONS (4)
  - BLOOD CAFFEINE INCREASED [None]
  - DRUG INEFFECTIVE [None]
  - FOOD CRAVING [None]
  - STRESS SYMPTOMS [None]
